FAERS Safety Report 11189351 (Version 1)
Quarter: 2015Q2

REPORT INFORMATION
  Report Type: Spontaneous
  Country: PR (occurrence: PR)
  Receive Date: 20150615
  Receipt Date: 20150615
  Transmission Date: 20150821
  Serious: Yes (Other)
  Sender: FDA-Public Use
  Company Number: PR-BAYER-2012-040762

PATIENT
  Age: 26 Year
  Sex: Female

DRUGS (2)
  1. YAZ [Suspect]
     Active Substance: DROSPIRENONE\ETHINYL ESTRADIOL
     Indication: ACNE
     Dosage: 1 DF, QD
     Route: 048
     Dates: start: 20120129, end: 20120421
  2. YASMIN [Suspect]
     Active Substance: DROSPIRENONE\ETHINYL ESTRADIOL
     Indication: ACNE
     Route: 048

REACTIONS (5)
  - Mood swings [None]
  - Haemorrhage [None]
  - Acne [None]
  - Product use issue [None]
  - Insomnia [Recovered/Resolved]

NARRATIVE: CASE EVENT DATE: 20120129
